FAERS Safety Report 14951599 (Version 1)
Quarter: 2018Q2

REPORT INFORMATION
  Report Type: Spontaneous
  Country: JP (occurrence: JP)
  Receive Date: 20180530
  Receipt Date: 20180530
  Transmission Date: 20180711
  Serious: Yes (Death, Hospitalization, Other)
  Sender: FDA-Public Use
  Company Number: JP-SAKK-BA201707623001

PATIENT
  Age: 79 Year
  Sex: Male
  Weight: 60 kg

DRUGS (22)
  1. IRINOTECAN HYDROCHLORIDE. [Concomitant]
     Active Substance: IRINOTECAN HYDROCHLORIDE
     Indication: COLON CANCER
     Route: 042
     Dates: start: 20170621, end: 20170621
  2. DECADRON [DEXAMETHASONE] [Concomitant]
     Route: 048
     Dates: start: 20170720, end: 20170721
  3. NOVAMIN [PROCHLORPERAZINE MALEATE] [Concomitant]
     Indication: VOMITING
     Route: 048
     Dates: start: 20170618, end: 20170618
  4. MIYA-BM [Concomitant]
     Active Substance: CLOSTRIDIUM BUTYRICUM SPORES STRAIN M-55
     Indication: DIARRHOEA
     Route: 048
     Dates: start: 20170804, end: 20170811
  5. LOPERAMIDE [LOPERAMIDE HYDROCHLORIDE] [Concomitant]
     Indication: DIARRHOEA
     Route: 048
     Dates: start: 20170802, end: 20170811
  6. ZALTRAP [Suspect]
     Active Substance: ZIV-AFLIBERCEPT
     Dosage: 248 UNK
     Route: 042
     Dates: start: 20170621, end: 20170808
  7. FLUOROURACIL. [Concomitant]
     Active Substance: FLUOROURACIL
     Indication: COLON CANCER
     Route: 042
     Dates: start: 20170621, end: 20170621
  8. ZALTRAP [Suspect]
     Active Substance: ZIV-AFLIBERCEPT
     Dosage: 248 MG, QOW
     Route: 042
     Dates: start: 20170719, end: 20170719
  9. ZALTRAP [Suspect]
     Active Substance: ZIV-AFLIBERCEPT
     Indication: COLON CANCER
     Dosage: DOSE: 248 MG/BODY
     Route: 042
     Dates: start: 20170629, end: 20170629
  10. ZALTRAP [Suspect]
     Active Substance: ZIV-AFLIBERCEPT
     Dosage: 248 MG, QOW
     Route: 042
     Dates: start: 20170615, end: 20170615
  11. FLUOROURACIL. [Concomitant]
     Active Substance: FLUOROURACIL
     Route: 042
     Dates: start: 20170808, end: 20170808
  12. DECADRON [DEXAMETHASONE] [Concomitant]
     Indication: VOMITING
     Route: 048
     Dates: start: 20170616, end: 20170617
  13. DECADRON [DEXAMETHASONE] [Concomitant]
     Route: 048
     Dates: start: 20170630, end: 20170701
  14. ENSURE [NUTRIENTS NOS] [Concomitant]
     Indication: MALNUTRITION
     Route: 048
     Dates: start: 20170725, end: 20170811
  15. ZALTRAP [Suspect]
     Active Substance: ZIV-AFLIBERCEPT
     Dosage: 248 MG, QOW
     Route: 042
     Dates: start: 20170802, end: 20170802
  16. LOXOPROFEN [LOXOPROFEN SODIUM] [Concomitant]
     Indication: BACK PAIN
     Route: 048
     Dates: start: 20170618, end: 20170625
  17. MAGNESIUM OXIDE. [Concomitant]
     Active Substance: MAGNESIUM OXIDE
     Indication: CONSTIPATION
     Route: 048
     Dates: start: 20170615, end: 20170813
  18. DECADRON [DEXAMETHASONE] [Concomitant]
     Route: 048
     Dates: start: 20170803, end: 20170804
  19. CALCIUM LEVOFOLINATE [Concomitant]
     Active Substance: LEVOLEUCOVORIN CALCIUM
     Indication: COLON CANCER
     Route: 042
     Dates: start: 20170621, end: 20170621
  20. CALCIUM LEVOFOLINATE [Concomitant]
     Active Substance: LEVOLEUCOVORIN CALCIUM
     Route: 042
     Dates: start: 20170808, end: 20170808
  21. IRINOTECAN HYDROCHLORIDE. [Concomitant]
     Active Substance: IRINOTECAN HYDROCHLORIDE
     Route: 042
     Dates: start: 20170808, end: 20170808
  22. MAINTATE [Concomitant]
     Active Substance: BISOPROLOL FUMARATE
     Indication: ANGINA PECTORIS
     Route: 048
     Dates: start: 20170804, end: 20170813

REACTIONS (24)
  - Spinal compression fracture [None]
  - Cardiac arrest [None]
  - Mouth ulceration [None]
  - Diarrhoea [Unknown]
  - Cardiogenic shock [None]
  - Febrile neutropenia [Recovered/Resolved]
  - Infection [None]
  - Anaemia [Unknown]
  - Dysgeusia [Unknown]
  - Pneumonia [None]
  - Upper airway obstruction [None]
  - Colon cancer metastatic [None]
  - Cardiac failure acute [None]
  - Stomatitis [Unknown]
  - Fall [None]
  - Platelet count decreased [Recovering/Resolving]
  - Red cell fragmentation syndrome [None]
  - Renal disorder [None]
  - Oliguria [None]
  - Pharyngeal ulceration [None]
  - Perineal ulceration [None]
  - Malignant neoplasm progression [None]
  - Pneumonia [Recovering/Resolving]
  - Decreased appetite [Unknown]

NARRATIVE: CASE EVENT DATE: 20170803
